FAERS Safety Report 15743322 (Version 3)
Quarter: 2019Q1

REPORT INFORMATION
  Report Type: Report from Study
  Country: CH (occurrence: CH)
  Receive Date: 20181220
  Receipt Date: 20190129
  Transmission Date: 20190417
  Serious: Yes (Hospitalization, Other)
  Sender: FDA-Public Use
  Company Number: CH-ROCHE-2231992

PATIENT
  Age: 59 Year
  Sex: Male
  Weight: 83.2 kg

DRUGS (2)
  1. VENETOCLAX. [Suspect]
     Active Substance: VENETOCLAX
     Indication: CHRONIC LYMPHOCYTIC LEUKAEMIA
     Dosage: DATE OF LAST DOSE (400 MG) OF VENETOCLAX ADMINISTERED PRIOR TO SAE ONSET 13/NOV/2018.?CYCLE 1: 20 MG
     Route: 048
     Dates: start: 20180605
  2. OBINUTUZUMAB. [Suspect]
     Active Substance: OBINUTUZUMAB
     Indication: CHRONIC LYMPHOCYTIC LEUKAEMIA
     Dosage: DATE OF LAST DOSE (1000 MG ) OF OBNITUZUMAB ADMINISTERED PRIOR TO SAE ONSET 02/OCT/2018.?CYCLE 1: 10
     Route: 042
     Dates: start: 20180515

REACTIONS (3)
  - Borrelia infection [Recovering/Resolving]
  - Lung infection [Recovered/Resolved]
  - Gastritis [Not Recovered/Not Resolved]

NARRATIVE: CASE EVENT DATE: 20181213
